FAERS Safety Report 4700199-3 (Version None)
Quarter: 2005Q2

REPORT INFORMATION
  Report Type: 
  Country: None (occurrence: None)
  Receive Date: 20050627
  Receipt Date: 20050617
  Transmission Date: 20051028
  Serious: Yes (Hospitalization)
  Sender: FDA-Public Use
  Company Number: JP-ABBOTT-05P-087-0303561-00

PATIENT
  Age: 2 Year
  Sex: Female

DRUGS (1)
  1. CEFZON SUSPENSION [Suspect]
     Indication: MASTOIDITIS
     Route: 048
     Dates: start: 20050514, end: 20050531

REACTIONS (2)
  - MENINGITIS [None]
  - NEUTROPENIA [None]
